FAERS Safety Report 23170770 (Version 1)
Quarter: 2023Q4

REPORT INFORMATION
  Report Type: Spontaneous
  Country: US (occurrence: None)
  Receive Date: 20231109
  Receipt Date: 20231109
  Transmission Date: 20240109
  Serious: Yes (Hospitalization)
  Sender: FDA-Public Use
  Company Number: None

PATIENT
  Sex: Female

DRUGS (3)
  1. KISQALI [Suspect]
     Active Substance: RIBOCICLIB
     Dosage: OTHER FREQUENCY : DAILY1-21EVERY28DA;?
     Route: 048
  2. LETROZOLE [Concomitant]
     Active Substance: LETROZOLE
  3. TRAMADOL HCL [Concomitant]

REACTIONS (2)
  - Gastrointestinal disorder [None]
  - Therapy cessation [None]
